FAERS Safety Report 9370543 (Version 1)
Quarter: 2013Q2

REPORT INFORMATION
  Report Type: Spontaneous
  Country: FR (occurrence: FR)
  Receive Date: 20130626
  Receipt Date: 20130626
  Transmission Date: 20140414
  Serious: Yes (Hospitalization)
  Sender: FDA-Public Use
  Company Number: FR-TEVA-415350ISR

PATIENT
  Age: 80 Year
  Sex: Female

DRUGS (10)
  1. FUROSEMIDE TEVA 40 MG [Suspect]
     Indication: CARDIAC FAILURE
     Dosage: 40 MILLIGRAM DAILY; FOR AT LEAST 2 MONTHS
     Route: 048
  2. RAMIPRIL 2,5 MG [Concomitant]
     Dosage: 2.5 MILLIGRAM DAILY;
  3. AMIODARONE [Concomitant]
     Dosage: 1 DOSAGE FORMS DAILY; 5 DAYS OUT OF 7
  4. DISCOTRINE 5 [Concomitant]
  5. KALEORID [Concomitant]
  6. SPIRIVA [Concomitant]
  7. PRADAXA 110 MG [Concomitant]
  8. PAROXETINE [Concomitant]
  9. IMOVANE [Concomitant]
  10. LEVOTHYROX 100 ?G [Concomitant]

REACTIONS (2)
  - Cardiac failure [Recovered/Resolved]
  - Acute pulmonary oedema [Recovered/Resolved]
